FAERS Safety Report 4719822-2 (Version None)
Quarter: 2005Q3

REPORT INFORMATION
  Report Type: 
  Country: None (occurrence: None)
  Receive Date: 20050721
  Receipt Date: 20041118
  Transmission Date: 20060218
  Serious: No
  Sender: FDA-Public Use
  Company Number: US-GLAXOSMITHKLINE-A0534499A

PATIENT
  Age: 72 Year
  Sex: Female

DRUGS (5)
  1. AVANDIA [Suspect]
     Dosage: 4MG PER DAY
     Route: 048
  2. GLUCOTROL XL [Concomitant]
     Indication: DRUG USE FOR UNKNOWN INDICATION
  3. ACCUPRIL [Concomitant]
     Indication: DRUG USE FOR UNKNOWN INDICATION
  4. TOPROL-XL [Concomitant]
     Indication: DRUG USE FOR UNKNOWN INDICATION
  5. CRESTOR [Concomitant]
     Indication: DRUG USE FOR UNKNOWN INDICATION

REACTIONS (3)
  - ASTHENIA [None]
  - BLOOD GLUCOSE DECREASED [None]
  - WEIGHT INCREASED [None]
